FAERS Safety Report 7476739-0 (Version None)
Quarter: 2011Q2

REPORT INFORMATION
  Report Type: 
  Country: None (occurrence: None)
  Receive Date: 20110512
  Receipt Date: 20110503
  Transmission Date: 20111010
  Serious: Yes (Other)
  Sender: FDA-Public Use
  Company Number: DE-BRISTOL-MYERS SQUIBB COMPANY-15715311

PATIENT
  Age: 78 Year
  Sex: Female

DRUGS (2)
  1. ONGLYZA [Suspect]
     Dosage: 1 DF: 1 X 1 TABLET
     Route: 048
     Dates: start: 20100101
  2. METFORMIN HCL [Suspect]

REACTIONS (1)
  - PANCREATITIS [None]
